FAERS Safety Report 10640685 (Version 3)
Quarter: 2014Q4

REPORT INFORMATION
  Report Type: Report from Study
  Country: US (occurrence: US)
  Receive Date: 20141209
  Receipt Date: 20141217
  Transmission Date: 20150529
  Serious: Yes (Hospitalization)
  Sender: FDA-Public Use
  Company Number: US-ACTELION-A-US2014-107962

PATIENT
  Age: 29 Year
  Sex: Female

DRUGS (7)
  1. VELETRI [Suspect]
     Active Substance: EPOPROSTENOL
     Indication: PULMONARY ARTERIAL HYPERTENSION
     Dosage: 2 NG/KG, PER MIN
     Route: 042
     Dates: start: 20141011
  2. VELETRI [Suspect]
     Active Substance: EPOPROSTENOL
     Dosage: 14 NG/KG, PER MIN
     Route: 042
  3. REVATIO [Concomitant]
     Active Substance: SILDENAFIL CITRATE
     Dosage: 20 MG, TID
     Dates: start: 20141106
  4. VIAGRA [Concomitant]
     Active Substance: SILDENAFIL CITRATE
     Dosage: 50 MG, TID
  5. VELETRI [Suspect]
     Active Substance: EPOPROSTENOL
     Dosage: 13 NG/KG, PER MIN
     Route: 042
     Dates: start: 20141111
  6. HYDROCODONE [Concomitant]
     Active Substance: HYDROCODONE
  7. VELETRI [Suspect]
     Active Substance: EPOPROSTENOL
     Dosage: 17 NG/KG, PER MIN
     Route: 042
     Dates: start: 20141125

REACTIONS (14)
  - Nausea [Unknown]
  - Skin exfoliation [Recovering/Resolving]
  - Female sterilisation [Unknown]
  - Abdominal pain [Recovered/Resolved]
  - Pain in extremity [Unknown]
  - Skin irritation [Unknown]
  - Pregnancy [Unknown]
  - Caesarean section [Unknown]
  - Live birth [Unknown]
  - Peripheral swelling [Unknown]
  - Back pain [Unknown]
  - Catheter site erythema [Unknown]
  - Hypoaesthesia [Unknown]
  - Pain [Unknown]

NARRATIVE: CASE EVENT DATE: 20141020
